FAERS Safety Report 6638525-0 (Version None)
Quarter: 2010Q1

REPORT INFORMATION
  Report Type: 
  Country: None (occurrence: None)
  Receive Date: 20100316
  Receipt Date: 20100316
  Transmission Date: 20100710
  Serious: Yes (Other)
  Sender: FDA-Public Use
  Company Number: None

PATIENT
  Age: 45 Year
  Sex: Male
  Weight: 83.9154 kg

DRUGS (1)
  1. LEVAQUIN [Suspect]

REACTIONS (2)
  - IMPAIRED HEALING [None]
  - TENDON INJURY [None]
